FAERS Safety Report 21386450 (Version 1)
Quarter: 2022Q3

REPORT INFORMATION
  Report Type: Spontaneous
  Country: JP (occurrence: JP)
  Receive Date: 20220928
  Receipt Date: 20220928
  Transmission Date: 20221027
  Serious: Yes (Death, Life-Threatening, Other)
  Sender: FDA-Public Use
  Company Number: JP-SLATE RUN PHARMACEUTICALS-22JP001341

PATIENT

DRUGS (5)
  1. VANCOMYCIN HYDROCHLORIDE [Suspect]
     Active Substance: VANCOMYCIN HYDROCHLORIDE
     Indication: Staphylococcus test positive
     Dosage: 750 MILLIGRAM, Q 12 HR
     Route: 042
  2. VANCOMYCIN HYDROCHLORIDE [Suspect]
     Active Substance: VANCOMYCIN HYDROCHLORIDE
     Indication: Escherichia bacteraemia
  3. CYTARABINE [Concomitant]
     Active Substance: CYTARABINE
     Indication: Acute myeloid leukaemia
     Dosage: HIGH-DOSE
  4. CEFEPIME [Concomitant]
     Active Substance: CEFEPIME HYDROCHLORIDE
     Indication: Febrile neutropenia
     Dosage: 2 GRAM, Q 12 HR
  5. FILGRASTIM [Concomitant]
     Active Substance: FILGRASTIM
     Indication: Bacteraemia

REACTIONS (9)
  - Multiple organ dysfunction syndrome [Fatal]
  - Cerebral haemorrhage [Fatal]
  - Septic shock [Unknown]
  - Respiratory failure [Unknown]
  - Left ventricular dysfunction [Unknown]
  - Tricuspid valve incompetence [Unknown]
  - Skin lesion [Unknown]
  - Renal failure [Unknown]
  - Off label use [Recovered/Resolved]
